FAERS Safety Report 7217743-7 (Version None)
Quarter: 2011Q1

REPORT INFORMATION
  Report Type: 
  Country: None (occurrence: None)
  Receive Date: 20110110
  Receipt Date: 20110105
  Transmission Date: 20110831
  Serious: Yes (Death)
  Sender: FDA-Public Use
  Company Number: GB-JNJFOC-20110100803

PATIENT
  Age: 25 Year
  Sex: Male

DRUGS (16)
  1. DARUNAVIR [Suspect]
     Indication: HIV INFECTION
     Route: 048
  2. MOXIFLOXACIN [Suspect]
     Indication: TUBERCULOSIS
     Route: 065
  3. HEPARIN [Concomitant]
     Indication: ILL-DEFINED DISORDER
     Route: 065
  4. TRUVADA [Concomitant]
     Indication: ILL-DEFINED DISORDER
     Route: 065
  5. ONDANSETRON [Suspect]
     Indication: ILL-DEFINED DISORDER
     Route: 065
  6. AMIKACIN [Concomitant]
     Indication: ANTIBIOTIC PROPHYLAXIS
     Route: 042
  7. CYCLOSERINE [Concomitant]
     Indication: TUBERCULOSIS
     Route: 065
  8. ETHAMBUTOL HYDROCHLORIDE [Concomitant]
     Indication: ANTIBIOTIC PROPHYLAXIS
     Route: 065
  9. PYRAZINAMIDE [Concomitant]
     Indication: ANTIBIOTIC PROPHYLAXIS
     Route: 065
  10. FLUCONAZOLE [Suspect]
     Indication: ORAL CANDIDIASIS
     Route: 065
  11. EFAVIRENZ [Concomitant]
     Indication: ILL-DEFINED DISORDER
     Route: 065
  12. PROTHIONAMIDE [Concomitant]
     Indication: TUBERCULOSIS
     Route: 065
  13. CLOFAZIMINE [Concomitant]
     Indication: ILL-DEFINED DISORDER
     Route: 065
  14. RITONAVIR [Suspect]
     Indication: HIV INFECTION
     Route: 065
  15. VALGANCICLOVIR HCL [Concomitant]
     Indication: ILL-DEFINED DISORDER
     Route: 065
  16. LINEZOLID [Concomitant]
     Indication: TUBERCULOSIS
     Route: 065

REACTIONS (1)
  - ARRHYTHMIA [None]
